FAERS Safety Report 7588221-0 (Version None)
Quarter: 2011Q3

REPORT INFORMATION
  Report Type: 
  Country: None (occurrence: None)
  Receive Date: 20110705
  Receipt Date: 20100217
  Transmission Date: 20111222
  Serious: No
  Sender: FDA-Public Use
  Company Number: US-BAYER-201015174NA

PATIENT
  Sex: Female

DRUGS (2)
  1. MIRENA [Suspect]
     Dosage: 20 MCG/24HR, CONT
     Route: 015
  2. DEPO SHOT [Concomitant]

REACTIONS (6)
  - VAGINAL HAEMORRHAGE [None]
  - AMENORRHOEA [None]
  - MEDICAL DEVICE COMPLICATION [None]
  - NAUSEA [None]
  - ABDOMINAL DISTENSION [None]
  - FATIGUE [None]
